FAERS Safety Report 7277589-0 (Version None)
Quarter: 2011Q1

REPORT INFORMATION
  Report Type: 
  Country: None (occurrence: None)
  Receive Date: 20110207
  Receipt Date: 20110126
  Transmission Date: 20110831
  Serious: Yes (Hospitalization)
  Sender: FDA-Public Use
  Company Number: US-ELI_LILLY_AND_COMPANY-US201006005774

PATIENT
  Sex: Female

DRUGS (19)
  1. XANAX [Concomitant]
     Dosage: 50 MG, DAILY (1/D)
  2. ZOCOR [Concomitant]
     Dosage: 20 MG, DAILY (1/D)
  3. CALCIUM [Concomitant]
     Dosage: 600 MG, 3/D
  4. LYRICA [Concomitant]
     Dosage: 75 MG, 2/D
  5. MILNACIPRAN [Concomitant]
     Dosage: 50 MG, DAILY (1/D)
  6. MULTI-VITAMIN [Concomitant]
     Dosage: UNK, DAILY (1/D)
  7. FORTEO [Suspect]
     Indication: OSTEOPOROSIS
     Dosage: 20 UG, DAILY (1/D)
  8. SALAGEN [Concomitant]
     Dosage: 5 MG, 4/D
  9. TOPROL-XL [Concomitant]
     Dosage: 50 MG, DAILY (1/D)
  10. METHOTREXATE [Concomitant]
     Dosage: UNK, UNKNOWN
     Route: 065
  11. FORTEO [Suspect]
     Dosage: 20 UG, DAILY (1/D)
  12. FORTEO [Suspect]
     Dosage: 20 UG, DAILY (1/D)
  13. VITAMIN D [Concomitant]
     Dosage: 50000 IU, WEEKLY (1/W)
  14. POTASSIUM CHLORIDE [Concomitant]
     Dosage: 20 MG, DAILY (1/D)
  15. TOPAMAX [Concomitant]
     Dosage: 50 MG, DAILY (1/D)
  16. FOLIC ACID [Concomitant]
     Dosage: UNK, UNKNOWN
     Route: 065
  17. AMITRIPTYLINE HCL [Concomitant]
     Dosage: 50 MG, 2/D
  18. LASIX [Concomitant]
     Dosage: 40 MG, DAILY (1/D)
  19. NEXIUM [Concomitant]
     Dosage: 40 MG, DAILY (1/D)

REACTIONS (10)
  - PAIN [None]
  - INJECTION SITE PAIN [None]
  - BLISTER [None]
  - DYSPHONIA [None]
  - DISCOMFORT [None]
  - SYSTEMIC LUPUS ERYTHEMATOSUS [None]
  - WAIST CIRCUMFERENCE INCREASED [None]
  - CONTUSION [None]
  - ABDOMINAL DISTENSION [None]
  - RIB FRACTURE [None]
